FAERS Safety Report 8423383 (Version 4)
Quarter: 2012Q4

REPORT INFORMATION
  Report Type: 
  Country: US (occurrence: US)
  Receive Date: 20120223
  Receipt Date: 20121001
  Transmission Date: 20130627
  Serious: Yes (Other)
  Sender: FDA-Public Use
  Company Number: US-RB-037361-12

PATIENT
  Age: 57 Year
  Sex: Male

DRUGS (6)
  1. SUBOXONE TABLETS [Suspect]
     Indication: DRUG DEPENDENCE
     Dosage: Unit dose 8 mg and 2 mg
     Route: 060
     Dates: start: 2008, end: 201202
  2. GABAPENTIN [Concomitant]
     Indication: NERVOUS SYSTEM DISORDER
     Dosage: Unknown
     Route: 065
  3. MIRTAZAPINE [Concomitant]
     Indication: SLEEP DISORDER
     Dosage: Unknown
     Route: 065
  4. SIMVASTATIN [Concomitant]
     Indication: BLOOD CHOLESTEROL INCREASED
     Dosage: Unknown
     Route: 065
  5. PREVACID [Concomitant]
     Indication: BARRETT^S OESOPHAGUS
     Dosage: Unknown
     Route: 065
  6. WELLBUTRIN [Concomitant]
     Indication: DEPRESSION
     Dosage: Unknown
     Route: 065

REACTIONS (6)
  - Intraductal papillary mucinous neoplasm [Not Recovered/Not Resolved]
  - Abdominal pain [Not Recovered/Not Resolved]
  - Pancreatic disorder [Not Recovered/Not Resolved]
  - Abdominal pain [Not Recovered/Not Resolved]
  - Nausea [Not Recovered/Not Resolved]
  - Diarrhoea [Not Recovered/Not Resolved]
